FAERS Safety Report 20033678 (Version 2)
Quarter: 2021Q4

REPORT INFORMATION
  Report Type: Report from Study
  Country: US (occurrence: US)
  Receive Date: 20211104
  Receipt Date: 20211203
  Transmission Date: 20220303
  Serious: Yes (Life-Threatening, Hospitalization)
  Sender: FDA-Public Use
  Company Number: US-BAYER-2021A241907

PATIENT
  Age: 62 Year
  Sex: Male
  Weight: 86.1 kg

DRUGS (2)
  1. REGORAFENIB [Suspect]
     Active Substance: REGORAFENIB
     Indication: Colorectal cancer metastatic
     Dosage: 120 MG QD X 21 DAYS
     Route: 048
     Dates: start: 20210915, end: 20211006
  2. IBUPROFEN [Concomitant]
     Active Substance: IBUPROFEN
     Indication: Pain
     Dosage: 200 MG
     Route: 048

REACTIONS (3)
  - Large intestinal haemorrhage [Recovered/Resolved with Sequelae]
  - Enterovesical fistula [None]
  - Bladder perforation [None]

NARRATIVE: CASE EVENT DATE: 20211010
